FAERS Safety Report 21548248 (Version 1)
Quarter: 2022Q4

REPORT INFORMATION
  Report Type: Spontaneous
  Country: US (occurrence: US)
  Receive Date: 20221103
  Receipt Date: 20221103
  Transmission Date: 20230113
  Serious: No
  Sender: FDA-Public Use
  Company Number: US-SANOFI-01344104

PATIENT
  Age: 34 Year
  Sex: Female

DRUGS (1)
  1. DUPIXENT [Suspect]
     Active Substance: DUPILUMAB
     Indication: Nasal polyps
     Dosage: 300 MG
     Dates: start: 202204

REACTIONS (6)
  - Epistaxis [Unknown]
  - Sensitive skin [Unknown]
  - Injection site dryness [Unknown]
  - Injection site exfoliation [Unknown]
  - Injection site bruising [Unknown]
  - Injection site swelling [Unknown]
